FAERS Safety Report 8127021-X (Version None)
Quarter: 2011Q4

REPORT INFORMATION
  Report Type: 
  Country: None (occurrence: None)
  Receive Date: 20111227
  Receipt Date: 20110927
  Transmission Date: 20120403
  Serious: No
  Sender: FDA-Public Use
  Company Number: PHEH2011US02713

PATIENT
  Age: 39 Year
  Sex: Female
  Weight: 129.7 kg

DRUGS (8)
  1. NAPROXEN [Concomitant]
  2. AMOXICILLIN [Concomitant]
  3. SINGULAIR [Concomitant]
  4. ANTIALLERGIC AGENTS, EXCL CORTICOSTEROIDS (NO INGREDIENTS/SUBSTANCES) [Concomitant]
  5. GILENYA [Suspect]
     Indication: MULTIPLE SCLEROSIS
     Dosage: 0.5 MG, QD, ORAL
     Route: 048
     Dates: start: 20110824
  6. HYDROCHLOROTHIAZIDE [Concomitant]
  7. CRYSELLE [Concomitant]
  8. PRENATAL (ASCORBIC ACID, CALCIUM GLUCONATE, CUPRIC CARBONATE BASIC CYA [Concomitant]

REACTIONS (1)
  - DYSPEPSIA [None]
